FAERS Safety Report 12524117 (Version 2)
Quarter: 2016Q3

REPORT INFORMATION
  Report Type: Spontaneous
  Country: BR (occurrence: BR)
  Receive Date: 20160704
  Receipt Date: 20160706
  Transmission Date: 20161109
  Serious: Yes (Other)
  Sender: FDA-Public Use
  Company Number: BR-ROCHE-1784142

PATIENT
  Age: 79 Year
  Sex: Female

DRUGS (33)
  1. TRASTUZUMAB EMTANSINE [Suspect]
     Active Substance: ADO-TRASTUZUMAB EMTANSINE
     Route: 065
     Dates: start: 20160530
  2. HERCEPTIN [Suspect]
     Active Substance: TRASTUZUMAB
     Dosage: 8TH CYCLE
     Route: 065
     Dates: start: 20150730
  3. HERCEPTIN [Suspect]
     Active Substance: TRASTUZUMAB
     Route: 065
     Dates: start: 20150910
  4. HERCEPTIN [Suspect]
     Active Substance: TRASTUZUMAB
     Route: 065
     Dates: start: 20160414
  5. DOCETAXEL. [Suspect]
     Active Substance: DOCETAXEL
     Dosage: 8TH CYCLE
     Route: 065
     Dates: start: 20150730
  6. PERTUZUMAB [Suspect]
     Active Substance: PERTUZUMAB
     Route: 065
     Dates: start: 20160118
  7. HERCEPTIN [Suspect]
     Active Substance: TRASTUZUMAB
     Route: 065
     Dates: start: 20151022
  8. HERCEPTIN [Suspect]
     Active Substance: TRASTUZUMAB
     Route: 065
     Dates: start: 20160118
  9. PERTUZUMAB [Suspect]
     Active Substance: PERTUZUMAB
     Dosage: 7TH CYCLE
     Route: 065
     Dates: start: 20150709
  10. PERTUZUMAB [Suspect]
     Active Substance: PERTUZUMAB
     Route: 065
     Dates: start: 20160414
  11. DOCETAXEL. [Suspect]
     Active Substance: DOCETAXEL
     Indication: PRODUCT USED FOR UNKNOWN INDICATION
     Route: 065
     Dates: start: 20150302
  12. ANASTROZOLE. [Suspect]
     Active Substance: ANASTROZOLE
     Route: 065
     Dates: start: 20160414
  13. HERCEPTIN [Suspect]
     Active Substance: TRASTUZUMAB
     Dosage: 7TH CYCLE
     Route: 065
     Dates: start: 20150709
  14. ANASTROZOLE. [Suspect]
     Active Substance: ANASTROZOLE
     Route: 065
     Dates: start: 20160118
  15. HERCEPTIN [Suspect]
     Active Substance: TRASTUZUMAB
     Indication: PRODUCT USED FOR UNKNOWN INDICATION
     Route: 065
     Dates: start: 20150302
  16. PERTUZUMAB [Suspect]
     Active Substance: PERTUZUMAB
     Route: 065
     Dates: start: 20151022
  17. ANASTROZOLE. [Suspect]
     Active Substance: ANASTROZOLE
     Indication: PRODUCT USED FOR UNKNOWN INDICATION
     Route: 065
     Dates: start: 20150115
  18. TRASTUZUMAB EMTANSINE [Suspect]
     Active Substance: ADO-TRASTUZUMAB EMTANSINE
     Indication: PRODUCT USED FOR UNKNOWN INDICATION
     Route: 065
     Dates: start: 20160509
  19. HERCEPTIN [Suspect]
     Active Substance: TRASTUZUMAB
     Dosage: 9TH CYCLE
     Route: 065
     Dates: start: 20150820
  20. HERCEPTIN [Suspect]
     Active Substance: TRASTUZUMAB
     Route: 065
     Dates: start: 20160219
  21. PERTUZUMAB [Suspect]
     Active Substance: PERTUZUMAB
     Dosage: 9TH CYCLE
     Route: 065
     Dates: start: 20150820
  22. PERTUZUMAB [Suspect]
     Active Substance: PERTUZUMAB
     Route: 065
     Dates: start: 20150910
  23. PERTUZUMAB [Suspect]
     Active Substance: PERTUZUMAB
     Route: 065
     Dates: start: 20160219
  24. DOCETAXEL. [Suspect]
     Active Substance: DOCETAXEL
     Dosage: 7TH CYCLE
     Route: 065
     Dates: start: 20150709
  25. DOCETAXEL. [Suspect]
     Active Substance: DOCETAXEL
     Route: 065
     Dates: start: 20160219
  26. PERTUZUMAB [Suspect]
     Active Substance: PERTUZUMAB
     Dosage: 8TH CYCLE
     Route: 065
     Dates: start: 20150730
  27. DOCETAXEL. [Suspect]
     Active Substance: DOCETAXEL
     Dosage: 9TH CYCLE
     Route: 065
     Dates: start: 20150820
  28. ANASTROZOLE. [Suspect]
     Active Substance: ANASTROZOLE
     Route: 065
  29. ANASTROZOLE. [Suspect]
     Active Substance: ANASTROZOLE
     Route: 065
     Dates: start: 20151022
  30. ZOLEDRONIC ACID [Suspect]
     Active Substance: ZOLEDRONIC ACID
     Indication: PRODUCT USED FOR UNKNOWN INDICATION
     Route: 065
     Dates: start: 20160118
  31. ZOLEDRONIC ACID [Suspect]
     Active Substance: ZOLEDRONIC ACID
     Route: 065
     Dates: start: 20160530
  32. PERTUZUMAB [Suspect]
     Active Substance: PERTUZUMAB
     Indication: PRODUCT USED FOR UNKNOWN INDICATION
     Route: 065
     Dates: start: 20150302
  33. ZOLEDRONIC ACID [Suspect]
     Active Substance: ZOLEDRONIC ACID
     Route: 065
     Dates: start: 20160414

REACTIONS (3)
  - Vitamin D decreased [Unknown]
  - Arthralgia [Unknown]
  - Chikungunya virus infection [Unknown]
